FAERS Safety Report 21346901 (Version 1)
Quarter: 2022Q3

REPORT INFORMATION
  Report Type: Spontaneous
  Country: US (occurrence: None)
  Receive Date: 20220916
  Receipt Date: 20220916
  Transmission Date: 20221027
  Serious: Yes (Life-Threatening, Hospitalization)
  Sender: FDA-Public Use
  Company Number: None

PATIENT
  Age: 74 Year
  Sex: Male
  Weight: 62 kg

DRUGS (1)
  1. DAPTOMYCIN [Suspect]
     Active Substance: DAPTOMYCIN
     Indication: Osteomyelitis
     Dates: start: 20220503, end: 20220615

REACTIONS (5)
  - Pyrexia [None]
  - Oxygen saturation decreased [None]
  - Pneumonia aspiration [None]
  - Lung opacity [None]
  - Eosinophilia [None]

NARRATIVE: CASE EVENT DATE: 20220621
